FAERS Safety Report 21267059 (Version 1)
Quarter: 2022Q3

REPORT INFORMATION
  Report Type: Spontaneous
  Country: CA (occurrence: CA)
  Receive Date: 20220829
  Receipt Date: 20220829
  Transmission Date: 20221027
  Serious: Yes (Hospitalization, Other)
  Sender: FDA-Public Use
  Company Number: CA-ANIPHARMA-2022-CA-001719

PATIENT
  Age: 25 Year
  Sex: Female

DRUGS (14)
  1. CANDESARTAN CILEXETIL [Suspect]
     Active Substance: CANDESARTAN CILEXETIL
     Indication: Migraine
     Dosage: 8 MG DAILY
     Route: 065
  2. CAMBIA [Concomitant]
     Active Substance: DICLOFENAC POTASSIUM
     Route: 065
  3. CYMBALTA [Concomitant]
     Active Substance: DULOXETINE HYDROCHLORIDE
     Route: 065
  4. ELETRIPTAN HYDROBROMIDE [Concomitant]
     Active Substance: ELETRIPTAN HYDROBROMIDE
     Route: 065
  5. MAGNESIUM [Concomitant]
     Active Substance: MAGNESIUM
     Dosage: 400 MG DAILY
     Route: 065
  6. NAPROXEN [Concomitant]
     Active Substance: NAPROXEN
     Route: 065
  7. NORTRIPTYLINE HYDROCHLORIDE [Concomitant]
     Active Substance: NORTRIPTYLINE HYDROCHLORIDE
     Dosage: 30 MG DAILY / 25 MG UNK
     Route: 065
  8. PREGABALIN [Concomitant]
     Active Substance: PREGABALIN
     Dosage: 150 MG
     Route: 065
  9. PROPRANOLOL HYDROCHLORIDE [Suspect]
     Active Substance: PROPRANOLOL HYDROCHLORIDE
     Route: 065
  10. AIMOVIG [Suspect]
     Active Substance: ERENUMAB-AOOE
  11. TOPIRAMATE [Suspect]
     Active Substance: TOPIRAMATE
     Dosage: 1 DF BID
     Route: 065
  12. AMITRIPTYLINE HYDROCHLORIDE\DIAZEPAM\PERPHENAZINE [Concomitant]
     Active Substance: AMITRIPTYLINE HYDROCHLORIDE\DIAZEPAM\PERPHENAZINE
     Route: 065
  13. TRAMADOL [Concomitant]
     Active Substance: TRAMADOL
     Route: 065
  14. BOTULINUM TOXIN TYPE A [Concomitant]
     Active Substance: BOTULINUM TOXIN TYPE A
     Dosage: 2000 IU
     Route: 065

REACTIONS (12)
  - Nausea [Unknown]
  - Vomiting [Unknown]
  - Drug ineffective for unapproved indication [Unknown]
  - Product use in unapproved indication [Unknown]
  - Dysarthria [Unknown]
  - Headache [Unknown]
  - Immunodeficiency [Unknown]
  - Injection site pain [Unknown]
  - Malaise [Unknown]
  - Migraine [Unknown]
  - Photosensitivity reaction [Unknown]
  - Insomnia [Unknown]
